FAERS Safety Report 5410193-5 (Version None)
Quarter: 2007Q3

REPORT INFORMATION
  Report Type: 
  Country: None (occurrence: None)
  Receive Date: 20070713
  Receipt Date: 20070411
  Transmission Date: 20080115
  Serious: No
  Sender: FDA-Public Use
  Company Number: 2007SP001329

PATIENT
  Sex: Female

DRUGS (2)
  1. LUNESTA [Suspect]
     Indication: INITIAL INSOMNIA
     Dosage: 2 MG;ORAL
     Route: 048
     Dates: start: 20070129, end: 20070101
  2. ASPIRIN [Concomitant]

REACTIONS (1)
  - INSOMNIA [None]
